FAERS Safety Report 6637999-9 (Version None)
Quarter: 2010Q1

REPORT INFORMATION
  Report Type: 
  Country: None (occurrence: None)
  Receive Date: 20100312
  Receipt Date: 20100222
  Transmission Date: 20100710
  Serious: Yes (Other)
  Sender: FDA-Public Use
  Company Number: JPI-P-009833

PATIENT
  Age: 39 Year
  Sex: Female
  Weight: 56.6996 kg

DRUGS (5)
  1. XYREM [Suspect]
     Indication: CATAPLEXY
     Dosage: 7.5 GM (3.75 GM, 2 IN 1 D), ORAL, 5 GM (5 GM, 1 IN 1 D), ORAL, 4 GM (4 GM, 1 IN 1 D), ORAL
     Route: 048
     Dates: start: 20040601
  2. RABEPRAZOLE SODIUM [Concomitant]
  3. FLUDROCORTISONE [Concomitant]
  4. TOPIRAMATE [Concomitant]
  5. ESCITALOPRAM OXALATE [Concomitant]

REACTIONS (6)
  - DEHYDRATION [None]
  - DIARRHOEA [None]
  - NAUSEA [None]
  - PRURITUS [None]
  - VIRAL INFECTION [None]
  - VOMITING [None]
